FAERS Safety Report 7143773 (Version 2)
Quarter: 2013Q1

REPORT INFORMATION
  Report Type: Report from Study
  Country: FR (occurrence: CI)
  Receive Date: 20091008
  Receipt Date: 20130307
  Transmission Date: 20140127
  Serious: Yes (Other)
  Sender: FDA-Public Use
  Company Number: CI-GILEAD-2009-0024578

PATIENT
  Age: 32 Year
  Sex: Female

DRUGS (7)
  1. EMTRICITABINE/TENOFOVIR DISOPROXIL FUMARATE [Suspect]
     Indication: HIV INFECTION
     Dosage: 1 DF, QD
     Route: 048
     Dates: start: 20080818, end: 20090918
  2. ZIDOVUDINE [Suspect]
     Indication: HIV INFECTION
     Dosage: 300 MG, BID
     Route: 048
     Dates: start: 20080818, end: 20090730
  3. SULFAMETHOXAZOLE [Concomitant]
     Indication: OPPORTUNISTIC INFECTION PROPHYLAXIS
     Route: 048
     Dates: start: 20080818, end: 20090728
  4. TRIMETHOPRIM [Concomitant]
     Indication: OPPORTUNISTIC INFECTION PROPHYLAXIS
     Route: 048
     Dates: start: 20080818, end: 20090728
  5. LOPINAVIR [Concomitant]
     Indication: HIV INFECTION
     Route: 048
     Dates: start: 20090730
  6. RITONAVIR [Concomitant]
     Indication: HIV INFECTION
     Dosage: 100 MG, BID
     Route: 048
     Dates: start: 20090730
  7. DUOVIR [Concomitant]
     Indication: HIV INFECTION
     Dosage: 450 MG, BID
     Dates: start: 20090730

REACTIONS (1)
  - Abortion spontaneous [Recovered/Resolved]
